FAERS Safety Report 8848954 (Version 2)
Quarter: 2013Q1

REPORT INFORMATION
  Report Type: Spontaneous
  Country: US (occurrence: None)
  Receive Date: 20121016
  Receipt Date: 20121207
  Transmission Date: 20140127
  Serious: Yes (Hospitalization)
  Sender: FDA-Public Use
  Company Number: ACO_32439-2012

PATIENT
  Age: 53 Year
  Sex: Male
  Weight: 99.8 kg

DRUGS (9)
  1. AMPYRA [Suspect]
     Indication: MULTIPLE SCLEROSIS
     Dates: start: 201111
  2. COPAXONE (GLATIRAMER ACETATE) [Concomitant]
  3. ACETAMINOPHEN W/CODEINE (CODEINE, PARACETAMOL) [Concomitant]
  4. ALDACTAZIDE (HYDROCHLOROTHIAZIDE, SPIRONOLACTONE) [Concomitant]
  5. AMANTADINE (AMANTADINE HYDROCHLORIDE) [Concomitant]
  6. CLONAZEPAM (CLONAZEPAM) [Concomitant]
  7. COLACE (DOCUSATE SODIUM) [Concomitant]
  8. LASIX (FUROSEMIDE) [Concomitant]
  9. WARFARIN SODIUM (WARFARIN SODIUM) [Concomitant]

REACTIONS (18)
  - Localised intraabdominal fluid collection [None]
  - Pleural effusion [None]
  - Atelectasis [None]
  - Mediastinal disorder [None]
  - Nodule [None]
  - Lymphadenopathy [None]
  - Retroperitoneal lymphadenopathy [None]
  - Abdominal lymphadenopathy [None]
  - Mesenteric vein thrombosis [None]
  - Liver disorder [None]
  - Renal mass [None]
  - Weight decreased [None]
  - Peritoneal disorder [None]
  - Gastrooesophageal reflux disease [None]
  - Gastritis erosive [None]
  - Arteriosclerosis [None]
  - Bone disorder [None]
  - Haemoglobin decreased [None]
